FAERS Safety Report 17423505 (Version 2)
Quarter: 2020Q1

REPORT INFORMATION
  Report Type: Spontaneous
  Country: JP (occurrence: JP)
  Receive Date: 20200217
  Receipt Date: 20200220
  Transmission Date: 20200409
  Serious: Yes (Hospitalization, Other)
  Sender: FDA-Public Use
  Company Number: JP-BRISTOL-MYERS SQUIBB COMPANY-BMS-2020-013035

PATIENT
  Age: 68 Year
  Sex: Male

DRUGS (1)
  1. OPDIVO [Suspect]
     Active Substance: NIVOLUMAB
     Indication: HEAD AND NECK CANCER
     Dosage: 4 MILLIGRAM/KILOGRAM, Q2WK
     Route: 041

REACTIONS (5)
  - Pneumonia aspiration [Unknown]
  - Ketoacidosis [Unknown]
  - Sepsis [Unknown]
  - Adrenal insufficiency [Unknown]
  - Prescribed overdose [Unknown]
